FAERS Safety Report 6946282-3 (Version None)
Quarter: 2010Q3

REPORT INFORMATION
  Report Type: 
  Country: None (occurrence: None)
  Receive Date: 20100824
  Receipt Date: 20100812
  Transmission Date: 20110219
  Serious: Yes (Hospitalization)
  Sender: FDA-Public Use
  Company Number: 2010101328

PATIENT
  Age: 34 Year
  Sex: Male

DRUGS (2)
  1. FRAGMIN [Suspect]
     Indication: THROMBOSIS PROPHYLAXIS
     Dates: start: 20100501
  2. CRESTOR [Concomitant]

REACTIONS (3)
  - DEEP VEIN THROMBOSIS [None]
  - DRUG INEFFECTIVE [None]
  - ISCHAEMIC CEREBRAL INFARCTION [None]
